FAERS Safety Report 8976485 (Version 1)
Quarter: 2012Q4

REPORT INFORMATION
  Report Type: 
  Country: ES (occurrence: ES)
  Receive Date: 20121220
  Receipt Date: 20121220
  Transmission Date: 20130627
  Serious: Yes (Death, Hospitalization)
  Sender: FDA-Public Use
  Company Number: ES-ELI_LILLY_AND_COMPANY-ES201212006112

PATIENT
  Age: 29 Year
  Sex: Male

DRUGS (2)
  1. ZYPREXA [Suspect]
     Indication: SCHIZOPHRENIA
     Dosage: 10 mg, bid
     Route: 048
     Dates: start: 20111019, end: 20120416
  2. ALPRAZOLAM [Concomitant]
     Indication: AGITATION
     Dosage: 0.25 mg, qd
     Route: 048
     Dates: start: 20120308, end: 20120407

REACTIONS (3)
  - Neuroleptic malignant syndrome [Fatal]
  - Respiratory failure [Fatal]
  - Bacteraemia [Fatal]
